FAERS Safety Report 5103075-X (Version None)
Quarter: 2006Q3

REPORT INFORMATION
  Report Type: 
  Country: None (occurrence: None)
  Receive Date: 20060907
  Receipt Date: 20060831
  Transmission Date: 20061208
  Serious: No
  Sender: FDA-Public Use
  Company Number: 2006-147262-NL

PATIENT
  Age: 32 Year
  Sex: Female

DRUGS (1)
  1. ETONOGESTREL [Suspect]
     Indication: CONTRACEPTION
     Dosage: DF SUBCUTANEOUS
     Route: 058
     Dates: start: 20050919

REACTIONS (5)
  - ALOPECIA [None]
  - BONE PAIN [None]
  - HYPERTENSION [None]
  - HYPOACUSIS [None]
  - THYROTOXIC CRISIS [None]
